FAERS Safety Report 5239076-0 (Version None)
Quarter: 2007Q1

REPORT INFORMATION
  Report Type: 
  Country: None (occurrence: None)
  Receive Date: 20070209
  Receipt Date: 20070126
  Transmission Date: 20070707
  Serious: Yes (Hospitalization)
  Sender: FDA-Public Use
  Company Number: RENA-12095

PATIENT
  Age: 77 Year
  Sex: Male

DRUGS (2)
  1. PHOSBLOCK 250 MG TABLETS [Suspect]
     Indication: HYPERPHOSPHATAEMIA
     Dosage: 1.5 G DAILY PO
     Route: 048
     Dates: start: 20070120, end: 20070122
  2. D-SORBITOL [Suspect]
     Indication: CONSTIPATION
     Dates: start: 20070120, end: 20070121

REACTIONS (1)
  - ILEUS PARALYTIC [None]
